FAERS Safety Report 14125751 (Version 1)
Quarter: 2017Q4

REPORT INFORMATION
  Report Type: Spontaneous
  Country: US (occurrence: US)
  Receive Date: 20171025
  Receipt Date: 20171025
  Transmission Date: 20180321
  Serious: No
  Sender: FDA-Public Use
  Company Number: US-BAYER-2017-202750

PATIENT
  Age: 81 Year
  Sex: Female

DRUGS (3)
  1. CIPROL [Concomitant]
     Dosage: UNK
  2. MIRALAX [Suspect]
     Active Substance: POLYETHYLENE GLYCOL 3350
     Indication: GASTROINTESTINAL DISORDER
     Dosage: UNK; MORE THAN HALF A DOSE MIXED IN 8OZ WATER
     Route: 048
     Dates: start: 2017, end: 20171018
  3. PRILOSEC [Concomitant]
     Active Substance: OMEPRAZOLE MAGNESIUM
     Dosage: UNK

REACTIONS (2)
  - Muscle spasms [Not Recovered/Not Resolved]
  - Product use issue [Unknown]
